FAERS Safety Report 21247322 (Version 1)
Quarter: 2022Q3

REPORT INFORMATION
  Report Type: Spontaneous
  Country: US (occurrence: US)
  Receive Date: 20220824
  Receipt Date: 20220824
  Transmission Date: 20221027
  Serious: No
  Sender: FDA-Public Use
  Company Number: US-PFIZER INC-202201078670

PATIENT
  Age: 61 Year
  Sex: Female

DRUGS (14)
  1. XELJANZ XR [Suspect]
     Active Substance: TOFACITINIB CITRATE
     Dosage: 11 MG, 1X/DAY
     Route: 048
     Dates: end: 20220701
  2. BUPRENORPHINE HYDROCHLORIDE [Concomitant]
     Active Substance: BUPRENORPHINE HYDROCHLORIDE
     Dosage: 2 MG
     Route: 060
  3. LITHIUM CARBONATE [Concomitant]
     Active Substance: LITHIUM CARBONATE
     Dosage: 150 MG
  4. PREDNISONE [Concomitant]
     Active Substance: PREDNISONE
     Dosage: 5 MG
  5. ESZOPICLONE [Concomitant]
     Active Substance: ESZOPICLONE
     Dosage: 1 MG
  6. HYDROXYZINE PAMOATE [Concomitant]
     Active Substance: HYDROXYZINE PAMOATE
     Dosage: 50 MG
  7. LISINOPRIL [Concomitant]
     Active Substance: LISINOPRIL
     Dosage: 10 MG
  8. DULOXETINE HYDROCHLORIDE [Concomitant]
     Active Substance: DULOXETINE HYDROCHLORIDE
     Dosage: 60 MG
  9. AMLODIPINE BESYLATE [Concomitant]
     Active Substance: AMLODIPINE BESYLATE
     Dosage: 10 MG
  10. PANTOPRAZOLE SODIUM ANHYDROUS [Concomitant]
     Active Substance: PANTOPRAZOLE SODIUM ANHYDROUS
     Dosage: 40 MG
  11. FOLIC ACID [Concomitant]
     Active Substance: FOLIC ACID
     Dosage: 1 MG
  12. PRAVASTATIN SODIUM [Concomitant]
     Active Substance: PRAVASTATIN SODIUM
     Dosage: 40 MG
  13. REXULTI [Concomitant]
     Active Substance: BREXPIPRAZOLE
     Dosage: 2 MG
  14. TIZANIDINE HYDROCHLORIDE [Concomitant]
     Active Substance: TIZANIDINE HYDROCHLORIDE
     Dosage: 4 MG

REACTIONS (3)
  - Pain [Unknown]
  - Inflammation [Unknown]
  - Condition aggravated [Unknown]

NARRATIVE: CASE EVENT DATE: 20220801
